FAERS Safety Report 24712877 (Version 1)
Quarter: 2024Q4

REPORT INFORMATION
  Report Type: Spontaneous
  Country: US (occurrence: None)
  Receive Date: 20241208
  Receipt Date: 20241208
  Transmission Date: 20250114
  Serious: Yes (Other)
  Sender: Public
  Company Number: None

PATIENT
  Age: 41 Year
  Sex: Female
  Weight: 86.4 kg

DRUGS (8)
  1. FLUTICASONE PROPIONATE [Suspect]
     Active Substance: FLUTICASONE PROPIONATE
     Indication: Chronic sinusitis
     Dosage: 1 SPRAY DAILY RESPIRTORY (INHALATION)?
     Route: 055
     Dates: start: 20241113, end: 20241207
  2. PREDNISONE [Suspect]
     Active Substance: PREDNISONE
  3. METFORMIN [Concomitant]
     Active Substance: METFORMIN HYDROCHLORIDE
  4. SPIRONOLACTONE [Concomitant]
     Active Substance: SPIRONOLACTONE
  5. Vienva birth control [Concomitant]
  6. VITAMIN D [Concomitant]
     Active Substance: VITAMIN D NOS
  7. MAGNESIUM GLYCINATE [Concomitant]
     Active Substance: MAGNESIUM GLYCINATE
  8. B12 [Concomitant]

REACTIONS (11)
  - Nausea [None]
  - Decreased appetite [None]
  - Dry skin [None]
  - Thirst [None]
  - Myalgia [None]
  - Catatonia [None]
  - Heart rate increased [None]
  - Anxiety [None]
  - Vertigo [None]
  - Brain fog [None]
  - Therapy cessation [None]

NARRATIVE: CASE EVENT DATE: 20241120
